FAERS Safety Report 23513070 (Version 1)
Quarter: 2024Q1

REPORT INFORMATION
  Report Type: Spontaneous
  Country: US (occurrence: None)
  Receive Date: 20240209
  Receipt Date: 20240209
  Transmission Date: 20240409
  Serious: Yes (Hospitalization)
  Sender: FDA-Public Use
  Company Number: None

PATIENT
  Sex: Female

DRUGS (4)
  1. TOBRAMYCIN [Suspect]
     Active Substance: TOBRAMYCIN
     Indication: Cystic fibrosis
     Dosage: 300 MG  VIA NEBULIZER??FREQUENCY: TWICE DAILY 28 DAYS ON, THEN 28 DAYS OFF.
     Route: 048
     Dates: start: 202305
  2. tobramycin (56A/28DAY) [Concomitant]
  3. GAYSTON INH SOLN [Concomitant]
  4. PULMOZYME [Concomitant]
     Active Substance: DORNASE ALFA

REACTIONS (1)
  - Hospitalisation [None]
